FAERS Safety Report 8821527 (Version 2)
Quarter: 2012Q4

REPORT INFORMATION
  Report Type: 
  Country: GB (occurrence: GB)
  Receive Date: 20121002
  Receipt Date: 20121018
  Transmission Date: 20130627
  Serious: Yes (Hospitalization)
  Sender: FDA-Public Use
  Company Number: GB-PFIZER INC-2012239065

PATIENT
  Age: 47 Year
  Sex: Female
  Weight: 67 kg

DRUGS (12)
  1. OXALIPLATIN [Suspect]
     Indication: COLON CANCER
     Dosage: 220 mg, every 3 weeks
     Route: 042
     Dates: start: 20061214
  2. CETUXIMAB [Suspect]
     Indication: PRODUCT USED FOR UNKNOWN INDICATION
     Dosage: UNK
  3. CAPECITABINE [Suspect]
     Indication: COLON CANCER
     Dosage: 1650 mg
     Route: 048
     Dates: start: 20061214, end: 20070108
  4. CAPECITABINE [Suspect]
     Dosage: 2300 mg, every 3 weeks
     Route: 048
     Dates: end: 20070130
  5. CAPECITABINE [Suspect]
     Dosage: UNK
     Route: 048
     Dates: start: 20070201
  6. BEVACIZUMAB [Suspect]
     Indication: PRODUCT USED FOR UNKNOWN INDICATION
     Dosage: 500 mg, every 3 weeks
     Route: 042
     Dates: start: 20061214
  7. ASPIRIN [Suspect]
     Indication: PRODUCT USED FOR UNKNOWN INDICATION
     Dosage: UNK
     Dates: start: 2007, end: 20070116
  8. DEXAMETHASONE [Concomitant]
     Indication: PRODUCT USED FOR UNKNOWN INDICATION
     Dosage: UNK
  9. LANSOPRAZOLE [Concomitant]
     Indication: PRODUCT USED FOR UNKNOWN INDICATION
     Dosage: 30 mg, UNK
  10. LORAZEPAM [Concomitant]
     Indication: PRODUCT USED FOR UNKNOWN INDICATION
     Dosage: 1 mg, UNK
  11. METOCLOPRAMIDE [Concomitant]
     Indication: PRODUCT USED FOR UNKNOWN INDICATION
     Dosage: 10mg, UNK
  12. LOPERAMIDE [Concomitant]
     Indication: PRODUCT USED FOR UNKNOWN INDICATION
     Dosage: 2 mg, as needed

REACTIONS (3)
  - Vomiting [Recovered/Resolved]
  - Throat tightness [Recovered/Resolved]
  - Faeces discoloured [Recovered/Resolved]
